FAERS Safety Report 8797627 (Version 1)
Quarter: 2012Q4

REPORT INFORMATION
  Report Type: 
  Country: BR (occurrence: BR)
  Receive Date: 20120920
  Receipt Date: 20120920
  Transmission Date: 20130627
  Serious: Yes (Other)
  Sender: FDA-Public Use
  Company Number: BR-JNJFOC-20120905200

PATIENT
  Sex: Female

DRUGS (2)
  1. INVEGA SUSTENNA [Suspect]
     Indication: AFFECTIVE DISORDER
     Route: 030
     Dates: end: 201205
  2. INVEGA SUSTENNA [Suspect]
     Indication: BIPOLAR DISORDER
     Route: 030
     Dates: end: 201205

REACTIONS (3)
  - Psychomotor skills impaired [Unknown]
  - Movement disorder [Unknown]
  - Dysphemia [Unknown]
